FAERS Safety Report 9193014 (Version 1)
Quarter: 2013Q1

REPORT INFORMATION
  Report Type: Spontaneous
  Country: US (occurrence: None)
  Receive Date: 20130325
  Receipt Date: 20130325
  Transmission Date: 20140127
  Serious: No
  Sender: FDA-Public Use
  Company Number: None

PATIENT
  Sex: Female

DRUGS (2)
  1. METHADONE 10 MG [Suspect]
  2. METHYLPHENIDATE HCL [Suspect]

REACTIONS (2)
  - Drug dispensing error [None]
  - Medication error [None]
